FAERS Safety Report 10596448 (Version 2)
Quarter: 2014Q4

REPORT INFORMATION
  Report Type: Spontaneous
  Country: BR (occurrence: BR)
  Receive Date: 20141120
  Receipt Date: 20141219
  Transmission Date: 20150529
  Serious: Yes (Other)
  Sender: FDA-Public Use
  Company Number: BR-PFIZER INC-2014317859

PATIENT
  Age: 89 Year
  Sex: Male

DRUGS (7)
  1. NORVASC [Suspect]
     Active Substance: AMLODIPINE BESYLATE
     Indication: HYPERTENSION
     Dosage: 1.5 TABLET OF 5MG PER DAY
     Route: 048
     Dates: start: 20041119
  2. PROPANOLOL [Concomitant]
     Active Substance: PROPRANOLOL HYDROCHLORIDE
     Indication: CORONARY ARTERY DISEASE
     Dosage: 1 OF 40 MG, 8/8 HRS
  3. EPOETIN ALFA [Concomitant]
     Active Substance: ERYTHROPOIETIN
     Indication: ANAEMIA
     Dosage: 2 INJECTIONS, WEEKLY
     Route: 058
  4. CALCITRIOL. [Concomitant]
     Active Substance: CALCITRIOL
     Indication: MINERAL SUPPLEMENTATION
     Dosage: 1 TABLET OF 0.25 MG, ALTERNATE DAY
     Dates: start: 201403
  5. NEUTROFER [Concomitant]
     Active Substance: FERROUS BISGLYCINATE
     Indication: MINERAL SUPPLEMENTATION
     Dosage: 1 TABLET OF 500 MG, DAILY
     Dates: start: 201403
  6. ZYLORIC ^FAES^ [Concomitant]
     Active Substance: ALLOPURINOL
     Indication: DIURETIC THERAPY
     Dosage: 1 TABLET, DAILY
     Dates: start: 2008
  7. CITALOR [Concomitant]
     Active Substance: ATORVASTATIN
     Indication: BLOOD CHOLESTEROL ABNORMAL
     Dosage: 1 TABLET 10 MG, DAILY

REACTIONS (6)
  - Lung disorder [Unknown]
  - Medication error [Unknown]
  - Malaise [Unknown]
  - Renal failure [Unknown]
  - Abdominal discomfort [Unknown]
  - Blood pressure inadequately controlled [Unknown]

NARRATIVE: CASE EVENT DATE: 2009
